FAERS Safety Report 8239065-8 (Version None)
Quarter: 2012Q1

REPORT INFORMATION
  Report Type: 
  Country: None (occurrence: None)
  Receive Date: 20120327
  Receipt Date: 20120315
  Transmission Date: 20120608
  Serious: Yes (Hospitalization)
  Sender: FDA-Public Use
  Company Number: US-RB-037615-12

PATIENT
  Age: 45 Year
  Sex: Female

DRUGS (7)
  1. SUBOXONE [Suspect]
     Indication: DRUG DEPENDENCE
     Route: 060
     Dates: start: 20100101
  2. ANTIBIOTICS [Concomitant]
     Indication: PNEUMONIA
     Dosage: DOSING DETAILS NOT PROVIDED
     Route: 065
     Dates: start: 20111101
  3. PAXIL [Concomitant]
     Indication: DEPRESSION
     Dosage: USED DAILY; UNKNOWN DOSE
     Route: 065
  4. XANAX [Concomitant]
     Indication: ANXIETY
     Route: 065
     Dates: start: 20080101
  5. SUBOXONE [Suspect]
     Indication: PAIN
     Route: 060
     Dates: start: 20100101
  6. STEROIDS [Concomitant]
     Indication: PNEUMONIA
     Dosage: DOSAGE DETAILS NOT PROVIDED
     Route: 065
     Dates: start: 20111101
  7. RESPIRATORY TREATMENTS [Concomitant]
     Indication: PNEUMONIA
     Dosage: DOSAGE DETAILS NOT PROVIDED
     Route: 048
     Dates: start: 20111101

REACTIONS (10)
  - COLD SWEAT [None]
  - HYPOAESTHESIA [None]
  - ARTHRITIS [None]
  - NAUSEA [None]
  - HEADACHE [None]
  - CHEST PAIN [None]
  - NECK PAIN [None]
  - CONDITION AGGRAVATED [None]
  - PNEUMONIA [None]
  - PAIN IN EXTREMITY [None]
